FAERS Safety Report 6899942-7 (Version None)
Quarter: 2010Q3

REPORT INFORMATION
  Report Type: 
  Country: None (occurrence: None)
  Receive Date: 20100803
  Receipt Date: 20100716
  Transmission Date: 20110219
  Serious: Yes (Other)
  Sender: FDA-Public Use
  Company Number: GB-NOVOPROD-311610

PATIENT
  Age: 64 Year
  Sex: Female

DRUGS (3)
  1. VAGIFEM [Suspect]
     Indication: ATROPHIC VULVOVAGINITIS
     Dosage: 1 DF, UNK
     Route: 061
     Dates: start: 20090101, end: 20100601
  2. BECONASE [Concomitant]
     Indication: SEASONAL ALLERGY
  3. LORATADINE [Concomitant]
     Indication: SEASONAL ALLERGY
     Dosage: 10 MG, UNK
     Route: 048

REACTIONS (3)
  - BREAST CANCER [None]
  - HOT FLUSH [None]
  - WITHDRAWAL SYNDROME [None]
